FAERS Safety Report 8832861 (Version 1)
Quarter: 2012Q4

REPORT INFORMATION
  Report Type: 
  Country: US (occurrence: None)
  Receive Date: 20121009
  Receipt Date: 20121009
  Transmission Date: 20130627
  Serious: No
  Sender: FDA-Public Use
  Company Number: None

PATIENT
  Age: 85 None
  Sex: Female
  Weight: 85.9 kg

DRUGS (3)
  1. METHOTREXATE [Suspect]
  2. PEG-L-ASPARAGINASE [Suspect]
  3. VINCRISTINE SULFATE [Suspect]

REACTIONS (2)
  - Blood bilirubin increased [None]
  - Bilirubin conjugated increased [None]
